FAERS Safety Report 18674813 (Version 2)
Quarter: 2021Q3

REPORT INFORMATION
  Report Type: Report from Study
  Country: UA (occurrence: UA)
  Receive Date: 20201229
  Receipt Date: 20210812
  Transmission Date: 20211014
  Serious: Yes (Other)
  Sender: FDA-Public Use
  Company Number: UA-ASTRAZENECA-2020SF73334

PATIENT
  Age: 60 Year
  Sex: Male
  Weight: 98 kg

DRUGS (2)
  1. BRILINTA [Suspect]
     Active Substance: TICAGRELOR
     Indication: MYOCARDIAL INFARCTION
     Route: 048
     Dates: start: 202007, end: 202009
  2. PLAVIX [Concomitant]
     Active Substance: CLOPIDOGREL BISULFATE
     Dosage: ONCE A DAY
     Route: 065

REACTIONS (4)
  - Dyspnoea [Recovered/Resolved]
  - Intestinal haemorrhage [Recovered/Resolved]
  - Vascular stent thrombosis [Recovered/Resolved]
  - Myocardial infarction [Recovered/Resolved]

NARRATIVE: CASE EVENT DATE: 202009
